FAERS Safety Report 6255713-6 (Version None)
Quarter: 2009Q3

REPORT INFORMATION
  Report Type: 
  Country: None (occurrence: None)
  Receive Date: 20090701
  Receipt Date: 20090625
  Transmission Date: 20100115
  Serious: Yes (Life-Threatening, Other)
  Sender: FDA-Public Use
  Company Number: 2009US001633

PATIENT
  Age: 59 Year
  Sex: Female

DRUGS (31)
  1. AMBISOME [Suspect]
     Indication: SYSTEMIC CANDIDA
     Dosage: 100 MG, UID/QD, IV NOS; 200 MG, UID/QD, IV NOS; 150 MG, UID/QD, IV NOS
     Route: 042
     Dates: start: 20080219, end: 20080225
  2. AMBISOME [Suspect]
     Indication: SYSTEMIC CANDIDA
     Dosage: 100 MG, UID/QD, IV NOS; 200 MG, UID/QD, IV NOS; 150 MG, UID/QD, IV NOS
     Route: 042
     Dates: start: 20080226, end: 20080228
  3. AMBISOME [Suspect]
     Indication: SYSTEMIC CANDIDA
     Dosage: 100 MG, UID/QD, IV NOS; 200 MG, UID/QD, IV NOS; 150 MG, UID/QD, IV NOS
     Route: 042
     Dates: start: 20080330, end: 20080410
  4. VFEND [Suspect]
     Indication: DRUG USE FOR UNKNOWN INDICATION
     Dosage: SEE IMAGE
     Route: 042
     Dates: start: 20080215, end: 20080215
  5. VFEND [Suspect]
     Indication: DRUG USE FOR UNKNOWN INDICATION
     Dosage: SEE IMAGE
     Route: 042
     Dates: start: 20080216, end: 20080216
  6. VFEND [Suspect]
     Indication: DRUG USE FOR UNKNOWN INDICATION
     Dosage: SEE IMAGE
     Route: 042
     Dates: start: 20080217, end: 20080218
  7. VFEND [Suspect]
     Indication: DRUG USE FOR UNKNOWN INDICATION
     Dosage: SEE IMAGE
     Route: 042
     Dates: start: 20080320, end: 20080320
  8. VFEND [Suspect]
     Indication: DRUG USE FOR UNKNOWN INDICATION
     Dosage: SEE IMAGE
     Route: 042
     Dates: start: 20080321, end: 20080328
  9. VFEND [Suspect]
     Indication: DRUG USE FOR UNKNOWN INDICATION
     Dosage: SEE IMAGE
     Route: 042
     Dates: start: 20080329, end: 20080329
  10. FUNGUARD (MICAFUNGIN) INJECTION [Concomitant]
  11. POTASSIUM CHLORIDE [Concomitant]
  12. REMINARON (GABEXATE MESILATE) [Concomitant]
  13. GASTER [Concomitant]
  14. ELEMENMIC (ZINC SULFATE, MANGANESE CHLORIDE) [Concomitant]
  15. LEVOTHYROXINE SODIUM [Concomitant]
  16. PRODIF (FOSFLUCONAZOLE) [Concomitant]
  17. ITRACONAZOLE [Concomitant]
  18. MEROPEN (MEROPENEM TRIHYDRATE) [Concomitant]
  19. PANTOL (PANTHENOL) [Concomitant]
  20. SOLU-CORTEF [Concomitant]
  21. TARGOCID [Concomitant]
  22. LANSOPRAZOLE [Concomitant]
  23. URSODIOL [Concomitant]
  24. MONILAC (LACTULOSE) [Concomitant]
  25. LASIX [Concomitant]
  26. ELASPOL (SIVELESTAT SODIUM) [Concomitant]
  27. METHYLPREDNISOLONE SODIUM SUCCINATE [Concomitant]
  28. DOPAMINE HYDROCHLORIDE [Concomitant]
  29. SODIUM CHLORIDE 0.9% [Concomitant]
  30. ATROPINE SULFATE [Concomitant]
  31. RED BLOOD CELLS [Concomitant]

REACTIONS (8)
  - FUNGAEMIA [None]
  - HYPERBILIRUBINAEMIA [None]
  - HYPOKALAEMIA [None]
  - MELAENA [None]
  - PNEUMOCYSTIS JIROVECI PNEUMONIA [None]
  - PNEUMONIA CYTOMEGALOVIRAL [None]
  - RENAL IMPAIRMENT [None]
  - SERUM FERRITIN INCREASED [None]
